FAERS Safety Report 8070599-5 (Version None)
Quarter: 2012Q1

REPORT INFORMATION
  Report Type: 
  Country: None (occurrence: None)
  Receive Date: 20120125
  Receipt Date: 20120118
  Transmission Date: 20120608
  Serious: Yes (Hospitalization, Other)
  Sender: FDA-Public Use
  Company Number: PHEH2012US001703

PATIENT
  Sex: Female

DRUGS (14)
  1. LEVOTHYROXINE SODIUM [Concomitant]
  2. PROAIR HFA [Concomitant]
     Dosage: UNK
  3. TOBI [Suspect]
     Dosage: 300 MG, BID
  4. LISINOPRIL [Concomitant]
  5. NEXIUM [Concomitant]
  6. IPRATROPIUM BROMIDE [Concomitant]
  7. RANITIDINE [Concomitant]
  8. SINGULAIR [Concomitant]
  9. NASONEX [Concomitant]
  10. SIMVASTATIN [Concomitant]
  11. ADVAIR DISKUS 100/50 [Concomitant]
  12. AMITRIPTYLINE HCL [Concomitant]
  13. ZOMIG [Concomitant]
  14. ESTRADIOL [Concomitant]

REACTIONS (5)
  - GENERAL PHYSICAL CONDITION ABNORMAL [None]
  - URINARY TRACT DISORDER [None]
  - RENAL DISORDER [None]
  - INNER EAR DISORDER [None]
  - BALANCE DISORDER [None]
